FAERS Safety Report 8542110-3 (Version None)
Quarter: 2012Q3

REPORT INFORMATION
  Report Type: 
  Country: None (occurrence: None)
  Receive Date: 20120726
  Receipt Date: 20111018
  Transmission Date: 20120928
  Serious: No
  Sender: FDA-Public Use
  Company Number: US-ASTRAZENECA-2011SE62736

PATIENT
  Age: 23 Year
  Sex: Female
  Weight: 68.9 kg

DRUGS (2)
  1. SEROQUEL [Suspect]
     Indication: PANIC ATTACK
     Route: 048
  2. SEROQUEL [Suspect]
     Route: 048

REACTIONS (3)
  - SOMNOLENCE [None]
  - LARYNGITIS [None]
  - OFF LABEL USE [None]
